FAERS Safety Report 9325194 (Version 3)
Quarter: 2013Q2

REPORT INFORMATION
  Report Type: Spontaneous
  Country: CA (occurrence: CA)
  Receive Date: 20130604
  Receipt Date: 20130624
  Transmission Date: 20140414
  Serious: Yes (Other)
  Sender: FDA-Public Use
  Company Number: CA-ROCHE-1231174

PATIENT
  Age: 77 Year
  Sex: Female
  Weight: 75.7 kg

DRUGS (5)
  1. RITUXAN [Suspect]
     Indication: NON-HODGKIN^S LYMPHOMA
     Route: 042
     Dates: start: 200901, end: 201110
  2. SYNTHROID [Concomitant]
     Route: 065
  3. ALLOPURINOL [Concomitant]
     Route: 065
  4. SLOW-K [Concomitant]
  5. PREDNISONE [Concomitant]

REACTIONS (2)
  - Recurrent cancer [Not Recovered/Not Resolved]
  - Cyst [Unknown]
